FAERS Safety Report 9516497 (Version 1)
Quarter: 2013Q1

REPORT INFORMATION
  Report Type: Spontaneous
  Country: US (occurrence: None)
  Receive Date: 20130305
  Receipt Date: 20130305
  Transmission Date: 20140127
  Serious: Yes (Hospitalization)
  Sender: FDA-Public Use
  Company Number: 163-21880-12120409

PATIENT
  Age: 66 Year
  Sex: Female

DRUGS (1)
  1. REVLIMID ?(LENALIDOMIDE) (CAPSULES) [Suspect]
     Indication: MYELODYSPLASTIC SYNDROME
     Dosage: 5 MG, 14 IN 14 D, PO  06/30/2011 - TEMP.
     Route: 048
     Dates: start: 20110630

REACTIONS (2)
  - Urinary tract infection [None]
  - Sepsis [None]
